FAERS Safety Report 17070538 (Version 2)
Quarter: 2019Q4

REPORT INFORMATION
  Report Type: Spontaneous
  Country: IT (occurrence: IT)
  Receive Date: 20191125
  Receipt Date: 20191128
  Transmission Date: 20200122
  Serious: Yes (Life-Threatening, Other)
  Sender: FDA-Public Use
  Company Number: IT-AUROBINDO-AUR-APL-2019-074131

PATIENT
  Sex: Female

DRUGS (4)
  1. PACLITAXEL. [Suspect]
     Active Substance: PACLITAXEL
     Indication: BREAST NEOPLASM
     Dosage: UNK 12 WEEKS
     Route: 065
     Dates: start: 201502
  2. CARBOPLATIN. [Suspect]
     Active Substance: CARBOPLATIN
     Indication: BREAST NEOPLASM
     Dosage: UNK 12 WEEKS
     Route: 065
     Dates: start: 201502
  3. DOXORUBICIN [Suspect]
     Active Substance: DOXORUBICIN
     Indication: BREAST NEOPLASM
     Dosage: UNK 4 CYCLES
     Route: 065
     Dates: start: 201502
  4. CYCLOPHOSPHAMIDE. [Suspect]
     Active Substance: CYCLOPHOSPHAMIDE
     Indication: BREAST NEOPLASM
     Dosage: UNK4 CYCLES
     Route: 065
     Dates: start: 201502

REACTIONS (2)
  - Alopecia [Recovered/Resolved]
  - Product use in unapproved indication [Unknown]
